FAERS Safety Report 7667627-5 (Version None)
Quarter: 2011Q3

REPORT INFORMATION
  Report Type: 
  Country: None (occurrence: None)
  Receive Date: 20110806
  Receipt Date: 20110613
  Transmission Date: 20111222
  Serious: No
  Sender: FDA-Public Use
  Company Number: US-ABBOTT-11P-163-0731794-00

PATIENT
  Sex: Male
  Weight: 87.622 kg

DRUGS (1)
  1. NIASPAN [Suspect]
     Indication: PRODUCT USED FOR UNKNOWN INDICATION
     Dosage: 1 IN 1 AT BEDTIME
     Dates: start: 20110606, end: 20110609

REACTIONS (3)
  - DRUG HYPERSENSITIVITY [None]
  - MIDDLE INSOMNIA [None]
  - PRURITUS [None]
